FAERS Safety Report 10935826 (Version 5)
Quarter: 2015Q4

REPORT INFORMATION
  Report Type: Report from Study
  Country: US (occurrence: US)
  Receive Date: 20150320
  Receipt Date: 20151208
  Transmission Date: 20160304
  Serious: Yes (Hospitalization, Other)
  Sender: FDA-Public Use
  Company Number: US-PURDUE-USA-2015-0121843

PATIENT
  Age: 48 Year
  Sex: Male

DRUGS (3)
  1. OXYCONTIN [Suspect]
     Active Substance: OXYCODONE HYDROCHLORIDE
     Dosage: 80 MG, TID
     Route: 048
     Dates: start: 1999
  2. OXYCONTIN [Suspect]
     Active Substance: OXYCODONE HYDROCHLORIDE
     Indication: PAIN
     Dosage: 80 MG, TID
     Route: 048
     Dates: start: 20141210
  3. OXYCONTIN [Suspect]
     Active Substance: OXYCODONE HYDROCHLORIDE
     Indication: INTERVERTEBRAL DISC DEGENERATION
     Dosage: 80 MG, TID
     Route: 048
     Dates: start: 20150416

REACTIONS (14)
  - Tooth infection [Unknown]
  - Cellulitis [Not Recovered/Not Resolved]
  - Fall [Recovered/Resolved]
  - Stomatitis [Unknown]
  - Pain [Unknown]
  - Intentional product use issue [Unknown]
  - Insomnia [Unknown]
  - Eating disorder [Unknown]
  - Suicidal ideation [Unknown]
  - Asthma [Not Recovered/Not Resolved]
  - Bone formation increased [Unknown]
  - Mental impairment [Unknown]
  - Peripheral swelling [Not Recovered/Not Resolved]
  - Bronchitis [Not Recovered/Not Resolved]

NARRATIVE: CASE EVENT DATE: 2013
